FAERS Safety Report 20316051 (Version 1)
Quarter: 2022Q1

REPORT INFORMATION
  Report Type: Spontaneous
  Country: US (occurrence: None)
  Receive Date: 20220110
  Receipt Date: 20220110
  Transmission Date: 20220423
  Serious: No
  Sender: FDA-Public Use
  Company Number: US-ROCHE-2832838

PATIENT
  Age: 52 Year
  Sex: Female
  Weight: 89.438 kg

DRUGS (15)
  1. RITUXAN [Suspect]
     Active Substance: RITUXIMAB
     Indication: Rheumatoid arthritis
     Route: 041
     Dates: start: 20210322
  2. SULFASALAZINE [Concomitant]
     Active Substance: SULFASALAZINE
     Indication: Rheumatoid arthritis
     Dosage: 500MG TABLETS BUT TAKES 2000MG/DAILY ;ONGOING: YES
     Route: 048
  3. PREDNISONE [Concomitant]
     Active Substance: PREDNISONE
     Indication: Rheumatoid arthritis
     Route: 048
  4. GABAPENTIN [Concomitant]
     Active Substance: GABAPENTIN
     Indication: Rheumatoid arthritis
     Dosage: THREE 600MG PILLS PER DAY FOR TOTAL OF 1800MG ;ONGOING: YES
     Route: 048
  5. XTAMPZA ER [Concomitant]
     Active Substance: OXYCODONE
     Indication: Pain
     Dosage: ONCE IN AM AND ONCE IN PM ;ONGOING: YES
     Route: 048
  6. XTAMPZA ER [Concomitant]
     Active Substance: OXYCODONE
     Indication: Rheumatoid arthritis
  7. WARFARIN [Concomitant]
     Active Substance: WARFARIN
     Indication: Anticoagulant therapy
     Dosage: EVERY SUNDAY, TUESDAY, THURSDAY ;ONGOING: YES
     Route: 048
  8. WARFARIN [Concomitant]
     Active Substance: WARFARIN
     Dosage: EVERY MONDAY, WEDNESDAY, FRIDAY, AND SATURDAY ;ONGOING: YES
     Route: 048
  9. PRAVASTATIN [Concomitant]
     Active Substance: PRAVASTATIN
     Indication: Blood cholesterol increased
     Route: 048
  10. HYDROCHLOROTHIAZIDE\LISINOPRIL [Concomitant]
     Active Substance: HYDROCHLOROTHIAZIDE\LISINOPRIL
     Indication: Hypertension
     Dosage: 10-12.5MG ;ONGOING: YES
     Route: 048
  11. COENZYME Q10 [Concomitant]
     Active Substance: DIETARY SUPPLEMENT\UBIDECARENONE
     Route: 048
  12. PRILOSEC [Concomitant]
     Active Substance: OMEPRAZOLE MAGNESIUM
     Dosage: 20MG IN AM AND 20MG IN PM ;ONGOING: YES
     Route: 048
  13. TIZANIDINE [Concomitant]
     Active Substance: TIZANIDINE
     Dosage: TAKES IN THE PM ;ONGOING: YES
     Route: 048
  14. FLUTICASONE PROPIONATE [Concomitant]
     Active Substance: FLUTICASONE PROPIONATE
     Dosage: 50MCG- 2 SPRAYS IN EACH NOSTRIL IN AM ;ONGOING: YES
     Route: 045
  15. AZELASTIN [Concomitant]
     Dosage: TWO SPRAYS IN EACH NOSTRIL IN THE MORNING ;ONGOING: YES
     Route: 045

REACTIONS (5)
  - Rash [Not Recovered/Not Resolved]
  - Pruritus [Not Recovered/Not Resolved]
  - Skin ulcer [Not Recovered/Not Resolved]
  - Blister [Not Recovered/Not Resolved]
  - Acne [Not Recovered/Not Resolved]

NARRATIVE: CASE EVENT DATE: 20210514
